FAERS Safety Report 14840416 (Version 4)
Quarter: 2018Q2

REPORT INFORMATION
  Report Type: Report from Study
  Country: None (occurrence: US)
  Receive Date: 20180503
  Receipt Date: 20180507
  Transmission Date: 20180711
  Serious: Yes (Death)
  Sender: FDA-Public Use
  Company Number: US-ABBVIE-18K-163-2343043-00

PATIENT
  Age: 50 Year
  Sex: Male
  Weight: 78.09 kg

DRUGS (3)
  1. HUMIRA [Suspect]
     Active Substance: ADALIMUMAB
     Indication: SPONDYLOARTHROPATHY
     Route: 058
     Dates: start: 201701
  2. VITAMIN D [Concomitant]
     Active Substance: CHOLECALCIFEROL
     Indication: PRODUCT USED FOR UNKNOWN INDICATION
  3. PREDNISONE. [Concomitant]
     Active Substance: PREDNISONE
     Indication: SPONDYLOARTHROPATHY

REACTIONS (3)
  - Off label use [Not Recovered/Not Resolved]
  - Depression [Unknown]
  - Completed suicide [Fatal]

NARRATIVE: CASE EVENT DATE: 201701
